FAERS Safety Report 8853066 (Version 2)
Quarter: 2012Q4

REPORT INFORMATION
  Report Type: 
  Country: US (occurrence: US)
  Receive Date: 20121022
  Receipt Date: 20121214
  Transmission Date: 20130627
  Serious: No
  Sender: FDA-Public Use
  Company Number: US-009507513-1210USA008272

PATIENT
  Age: 55 None
  Sex: Male

DRUGS (3)
  1. VICTRELIS [Suspect]
     Indication: HEPATITIS C
     Dosage: 800 mg, tid
     Route: 048
     Dates: start: 20120827
  2. PEGINTRON [Suspect]
     Indication: HEPATITIS C
     Dosage: 120 Microgram, qw
     Route: 058
     Dates: start: 20120712
  3. RIBAPAK [Suspect]
     Indication: HEPATITIS C
     Dosage: 600 mg every morning and 400 mg every evening
     Dates: start: 20120712

REACTIONS (8)
  - Influenza like illness [Unknown]
  - Pyrexia [Unknown]
  - Pruritus generalised [Unknown]
  - White blood cell count decreased [Unknown]
  - Fatigue [Unknown]
  - Rash [Unknown]
  - Anaemia [Unknown]
  - Red blood cell count decreased [Unknown]
